FAERS Safety Report 17442128 (Version 4)
Quarter: 2020Q2

REPORT INFORMATION
  Report Type: Spontaneous
  Country: US (occurrence: US)
  Receive Date: 20200220
  Receipt Date: 20200401
  Transmission Date: 20200713
  Serious: Yes (Hospitalization)
  Sender: FDA-Public Use
  Company Number: US-NEUROCRINE BIOSCIENCES INC.-2020NBI00467

PATIENT
  Age: 77 Year
  Sex: Female

DRUGS (18)
  1. LOSARTAN AND HYDROCHLOROTHIAZIDE [Concomitant]
     Active Substance: HYDROCHLOROTHIAZIDE\LOSARTAN POTASSIUM
     Dosage: 100-25 MG
  2. CALCIUM, MAGNESIUM, ZINC, D3 TABLET [Concomitant]
  3. VITAMIN C [Concomitant]
     Active Substance: ASCORBIC ACID
  4. MULTIVITAMIN [Concomitant]
     Active Substance: VITAMINS
  5. BENZTROPINE. [Concomitant]
     Active Substance: BENZTROPINE
     Dates: end: 20200210
  6. ESOMEPRAZOLE MAGNESIUM. [Concomitant]
     Active Substance: ESOMEPRAZOLE MAGNESIUM
     Indication: DYSPEPSIA
     Dosage: 1 CAPSULE DAILY IF NEEDED
  7. RANITIDINE. [Concomitant]
     Active Substance: RANITIDINE
     Dosage: AS NEEDED
  8. CALCIUM CARBONATE. [Concomitant]
     Active Substance: CALCIUM CARBONATE
  9. INGREZZA [Suspect]
     Active Substance: VALBENAZINE
     Route: 048
     Dates: start: 20191230, end: 20200220
  10. INGREZZA [Suspect]
     Active Substance: VALBENAZINE
     Indication: TARDIVE DYSKINESIA
     Route: 048
     Dates: start: 20191209, end: 20191229
  11. TRIFLUOPERAZINE [Concomitant]
     Active Substance: TRIFLUOPERAZINE HYDROCHLORIDE
     Dosage: 1.5 TABLETS TWICE DAILY
  12. METAMUCIL [Concomitant]
     Active Substance: PLANTAGO SEED
     Dosage: 1 TEASPOON WITH WATER
  13. GLUCOSAMINE CHONDROITIN COMPLEX [Concomitant]
     Active Substance: CHONDROITIN SULFATE (BOVINE)\GLUCOSAMINE HYDROCHLORIDE
  14. BUDESONIDE EC [Concomitant]
     Active Substance: BUDESONIDE
     Dates: start: 20191009
  15. TURMERIC CURCUMIN [Concomitant]
     Active Substance: HERBALS\TURMERIC
  16. DONEPEZIL. [Concomitant]
     Active Substance: DONEPEZIL
     Indication: MEMORY IMPAIRMENT
     Dates: start: 20191112
  17. BIOTIN [Concomitant]
     Active Substance: BIOTIN
  18. RESTASIS [Concomitant]
     Active Substance: CYCLOSPORINE

REACTIONS (4)
  - Coordination abnormal [Recovering/Resolving]
  - Insomnia [Unknown]
  - Motor dysfunction [Recovered/Resolved]
  - Parkinsonian gait [Recovering/Resolving]

NARRATIVE: CASE EVENT DATE: 20200208
